FAERS Safety Report 7394730-X (Version None)
Quarter: 2011Q2

REPORT INFORMATION
  Report Type: 
  Country: None (occurrence: None)
  Receive Date: 20110405
  Receipt Date: 20110330
  Transmission Date: 20111010
  Serious: Yes (Disabling, Other)
  Sender: FDA-Public Use
  Company Number: JP-JNJFOC-20110204392

PATIENT
  Age: 72 Year
  Sex: Female

DRUGS (8)
  1. KENTAN [Suspect]
     Indication: JOINT SWELLING
     Route: 048
  2. MUCOSTA [Concomitant]
     Route: 065
  3. DIOVAN [Concomitant]
     Route: 065
  4. CLARUTE R [Concomitant]
     Route: 065
  5. CINAL [Concomitant]
     Route: 065
  6. CRAVIT [Suspect]
     Indication: CYSTITIS-LIKE SYMPTOM
     Route: 048
  7. RIZE [Concomitant]
     Route: 065
  8. JUVELA N [Concomitant]
     Route: 065

REACTIONS (2)
  - DYSAESTHESIA [None]
  - BLOOD PRESSURE INCREASED [None]
